FAERS Safety Report 8882091 (Version 4)
Quarter: 2013Q3

REPORT INFORMATION
  Report Type: Spontaneous
  Country: JP (occurrence: JP)
  Receive Date: 20121102
  Receipt Date: 20130906
  Transmission Date: 20140515
  Serious: Yes (Other)
  Sender: FDA-Public Use
  Company Number: JP-AMGEN-JPNSP2012069342

PATIENT
  Age: 74 Year
  Sex: Male

DRUGS (12)
  1. RANMARK [Suspect]
     Indication: PROSTATE CANCER
     Dosage: 120 MG, QD
     Route: 058
     Dates: start: 20120425, end: 20121004
  2. TAXOTERE [Concomitant]
     Dosage: 100MG 1/3-4WEEK
     Route: 042
     Dates: start: 20101119
  3. ZOLADEX                            /00732102/ [Concomitant]
     Dosage: 3.6MG 1/4WEEK
     Route: 058
     Dates: start: 20041019
  4. VOGLIBOSE [Concomitant]
     Route: 048
     Dates: start: 20041125
  5. GLIBENCLAMIDE [Concomitant]
     Route: 048
     Dates: start: 20041125
  6. ACTOS [Concomitant]
     Dosage: 15 MG, QD
     Route: 048
     Dates: start: 20041125
  7. BAYASPIRIN [Concomitant]
     Dosage: 100 MG, QD
     Route: 048
     Dates: start: 20100205
  8. TAKEPRON [Concomitant]
     Dosage: 30 MG, QD
     Route: 048
     Dates: start: 200709
  9. ALFACALCIDOL [Concomitant]
     Route: 048
     Dates: start: 20110315
  10. PREDONINE                          /00016201/ [Concomitant]
     Route: 048
     Dates: start: 20101119, end: 20121002
  11. PREDONINE                          /00016201/ [Concomitant]
     Route: 048
     Dates: start: 20101119, end: 20121002
  12. CALTAN [Concomitant]
     Route: 048
     Dates: start: 20120327

REACTIONS (1)
  - Osteonecrosis of jaw [Not Recovered/Not Resolved]
